FAERS Safety Report 11888024 (Version 1)
Quarter: 2016Q1

REPORT INFORMATION
  Report Type: Spontaneous
  Country: US (occurrence: None)
  Receive Date: 20160104
  Receipt Date: 20160104
  Transmission Date: 20160526
  Serious: No
  Sender: FDA-Public Use
  Company Number: None

PATIENT
  Age: 63 Year
  Sex: Male
  Weight: 74.84 kg

DRUGS (3)
  1. HUMALOG KWIKPEN [Suspect]
     Active Substance: INSULIN LISPRO
     Indication: DRUG THERAPY
     Dosage: SLIDING SCALE, GIVEN INTO/UNDER THE SKIN
     Dates: start: 20151001, end: 20151231
  2. GLIMEPIRIDE. [Concomitant]
     Active Substance: GLIMEPIRIDE
  3. METFORMIN [Concomitant]
     Active Substance: METFORMIN HYDROCHLORIDE

REACTIONS (5)
  - Device difficult to use [None]
  - Incorrect dose administered by device [None]
  - Injection site pain [None]
  - Syringe issue [None]
  - Product packaging issue [None]

NARRATIVE: CASE EVENT DATE: 20151231
